FAERS Safety Report 5586196-7 (Version None)
Quarter: 2007Q4

REPORT INFORMATION
  Report Type: 
  Country: None (occurrence: None)
  Receive Date: 20071203
  Receipt Date: 20061002
  Transmission Date: 20080405
  Serious: Yes (Other)
  Sender: FDA-Public Use
  Company Number: US018388

PATIENT

DRUGS (1)
  1. TRISENOX [Suspect]
     Dates: start: 20060901

REACTIONS (1)
  - NEUTROPENIA [None]
